FAERS Safety Report 8174760-0 (Version None)
Quarter: 2012Q1

REPORT INFORMATION
  Report Type: 
  Country: None (occurrence: None)
  Receive Date: 20120229
  Receipt Date: 20120214
  Transmission Date: 20120608
  Serious: No
  Sender: FDA-Public Use
  Company Number: PHEH2012US003858

PATIENT
  Sex: Female

DRUGS (7)
  1. VITAMIN D [Concomitant]
     Dosage: UNK UKN, UNK
  2. DOXEPIN HCL [Concomitant]
     Dosage: UNK UKN, UNK
  3. TASIGNA [Suspect]
     Indication: CHRONIC MYELOID LEUKAEMIA
     Dosage: UNK UKN, UNK
     Route: 048
  4. SERTRALINE HYDROCHLORIDE [Concomitant]
     Dosage: UNK UKN, UNK
  5. GLIPIZIDE [Concomitant]
     Dosage: UNK UKN, UNK
  6. PRILOSEC [Concomitant]
     Dosage: UNK UKN, UNK
  7. TRAZODONE HCL [Concomitant]
     Dosage: UNK UKN, UNK

REACTIONS (1)
  - SKIN TOXICITY [None]
